APPROVED DRUG PRODUCT: GLYBURIDE (MICRONIZED)
Active Ingredient: GLYBURIDE
Strength: 1.5MG
Dosage Form/Route: TABLET;ORAL
Application: A075890 | Product #001
Applicant: HIKMA PHARMACEUTICALS
Approved: Jul 31, 2003 | RLD: No | RS: No | Type: DISCN